FAERS Safety Report 19834982 (Version 3)
Quarter: 2024Q2

REPORT INFORMATION
  Report Type: Report from Study
  Country: US (occurrence: US)
  Receive Date: 20210915
  Receipt Date: 20240429
  Transmission Date: 20240716
  Serious: No
  Sender: FDA-Public Use
  Company Number: US-KYOWAKIRIN-2021BKK015353

PATIENT

DRUGS (5)
  1. CRYSVITA [Suspect]
     Active Substance: BUROSUMAB-TWZA
     Indication: Hereditary hypophosphataemic rickets
     Dosage: 20 MG, 1X/4 WEEKS (20 MG, Q28 DAYS)
     Route: 058
     Dates: start: 202104
  2. CRYSVITA [Suspect]
     Active Substance: BUROSUMAB-TWZA
     Indication: Osteomalacia
     Dosage: 20 MG, 1X/4 WEEKS
     Route: 058
     Dates: start: 202312
  3. CRYSVITA [Suspect]
     Active Substance: BUROSUMAB-TWZA
     Indication: Hereditary hypophosphataemic rickets
     Dosage: 30 MG, 1X/4 WEEKS (30 MG, Q28 DAYS)
     Route: 058
     Dates: start: 202104
  4. CRYSVITA [Suspect]
     Active Substance: BUROSUMAB-TWZA
     Indication: Osteomalacia
     Dosage: 30 MG, 1X/4 WEEKS
     Route: 058
     Dates: start: 202312
  5. CRYSVITA [Suspect]
     Active Substance: BUROSUMAB-TWZA
     Indication: Hereditary hypophosphataemic rickets
     Dosage: 50 MG, 1X/4 WEEKS (50 MG, Q4WEEKS)
     Route: 058
     Dates: start: 2021

REACTIONS (6)
  - Injection site paraesthesia [Unknown]
  - Eye swelling [Unknown]
  - Dental caries [Unknown]
  - Pain in extremity [Unknown]
  - Injection site reaction [Unknown]
  - Product use in unapproved indication [Not Recovered/Not Resolved]

NARRATIVE: CASE EVENT DATE: 20210101
